FAERS Safety Report 21051382 (Version 1)
Quarter: 2022Q3

REPORT INFORMATION
  Report Type: Spontaneous
  Country: TR (occurrence: TR)
  Receive Date: 20220707
  Receipt Date: 20220707
  Transmission Date: 20221027
  Serious: Yes (Death, Life-Threatening, Hospitalization, Other)
  Sender: FDA-Public Use
  Company Number: None

PATIENT
  Age: 30 Month
  Sex: Male

DRUGS (3)
  1. MYCOPHENOLATE MOFETIL [Suspect]
     Active Substance: MYCOPHENOLATE MOFETIL
     Indication: Immunosuppressant drug therapy
     Dosage: UNK
     Route: 065
  2. TACROLIMUS [Suspect]
     Active Substance: TACROLIMUS
     Indication: Immunosuppressant drug therapy
     Dosage: 1 MILLIGRAM EVERY 1 DAY
     Route: 065
  3. FLUCONAZOLE [Concomitant]
     Active Substance: FLUCONAZOLE
     Indication: Prophylaxis
     Dosage: UNK
     Route: 065

REACTIONS (7)
  - Systemic inflammatory response syndrome [Fatal]
  - B-cell lymphoma [Fatal]
  - Post transplant lymphoproliferative disorder [Fatal]
  - Epstein-Barr viraemia [Fatal]
  - Liver transplant rejection [Fatal]
  - Cytomegalovirus viraemia [Recovered/Resolved]
  - Pneumatosis intestinalis [Unknown]
